FAERS Safety Report 13527666 (Version 3)
Quarter: 2017Q2

REPORT INFORMATION
  Report Type: Spontaneous
  Country: US (occurrence: US)
  Receive Date: 20170509
  Receipt Date: 20170626
  Transmission Date: 20170830
  Serious: No
  Sender: FDA-Public Use
  Company Number: US-GLAXOSMITHKLINE-US2017GSK066902

PATIENT
  Age: 17 Year
  Sex: Female
  Weight: 58.96 kg

DRUGS (4)
  1. PETADOLEX [Concomitant]
     Indication: MIGRAINE
     Dosage: UNK
  2. GABAPENTIN. [Concomitant]
     Active Substance: GABAPENTIN
     Indication: MIGRAINE
     Dosage: UNK
  3. ZOMIG [Concomitant]
     Active Substance: ZOLMITRIPTAN
     Indication: MIGRAINE
     Dosage: UNK
  4. SUMATRIPTAN (SUMATRIPTAN SUCCINATE) NASAL SPRAY [Suspect]
     Active Substance: SUMATRIPTAN SUCCINATE
     Indication: MIGRAINE
     Dosage: 1 DF, PRN
     Dates: start: 201704

REACTIONS (3)
  - Product quality issue [Unknown]
  - Migraine [Recovered/Resolved]
  - Drug dose omission [Unknown]

NARRATIVE: CASE EVENT DATE: 201704
